FAERS Safety Report 21508016 (Version 1)
Quarter: 2022Q4

REPORT INFORMATION
  Report Type: Spontaneous
  Country: JP (occurrence: JP)
  Receive Date: 20221026
  Receipt Date: 20221026
  Transmission Date: 20230113
  Serious: Yes (Other)
  Sender: FDA-Public Use
  Company Number: JP-MSD-M2022-44854

PATIENT
  Age: 8 Decade
  Sex: Female

DRUGS (2)
  1. KEYTRUDA [Suspect]
     Active Substance: PEMBROLIZUMAB
     Indication: Renal cell carcinoma
     Dosage: 200 MILLIGRAM, Q3W
     Route: 041
     Dates: start: 202209, end: 202209
  2. LENVATINIB MESYLATE [Suspect]
     Active Substance: LENVATINIB MESYLATE
     Indication: Renal cell carcinoma
     Dosage: 20 MILLIGRAM, QD
     Route: 048
     Dates: start: 202209, end: 2022

REACTIONS (3)
  - Immune-mediated arthritis [Not Recovered/Not Resolved]
  - Gastrointestinal disorder [Unknown]
  - Thyroiditis [Unknown]

NARRATIVE: CASE EVENT DATE: 20220101
